FAERS Safety Report 22521245 (Version 1)
Quarter: 2023Q2

REPORT INFORMATION
  Report Type: Spontaneous
  Country: US (occurrence: None)
  Receive Date: 20230602
  Receipt Date: 20230602
  Transmission Date: 20230722
  Serious: No
  Sender: FDA-Public Use
  Company Number: None

PATIENT
  Age: 45 Year
  Sex: Male
  Weight: 72.57 kg

DRUGS (1)
  1. SIMPONI [Suspect]
     Active Substance: GOLIMUMAB
     Indication: Spinal osteoarthritis
     Dosage: INJECT 50MG SUBCUTANEOUSLY EVERY 4 WEEKS AS DIRECTED
     Route: 058
     Dates: start: 202206

REACTIONS (2)
  - Illness [None]
  - Pharyngitis streptococcal [None]
